FAERS Safety Report 20165351 (Version 2)
Quarter: 2021Q4

REPORT INFORMATION
  Report Type: Spontaneous
  Country: US (occurrence: US)
  Receive Date: 20211209
  Receipt Date: 20211216
  Transmission Date: 20220303
  Serious: Yes (Hospitalization, Other)
  Sender: FDA-Public Use
  Company Number: US-PFIZER INC-202101664410

PATIENT
  Age: 71 Year
  Sex: Female

DRUGS (1)
  1. DOXYCYCLINE HYCLATE [Suspect]
     Active Substance: DOXYCYCLINE HYCLATE
     Indication: Pemphigoid
     Dosage: 100 MG, 2X/DAY

REACTIONS (6)
  - Oesophagitis [Recovered/Resolved]
  - Acute hepatic failure [Unknown]
  - Drug-induced liver injury [Unknown]
  - Hepatic encephalopathy [Unknown]
  - Jaundice [Not Recovered/Not Resolved]
  - Off label use [Unknown]
